FAERS Safety Report 7094585-7 (Version None)
Quarter: 2010Q4

REPORT INFORMATION
  Report Type: 
  Country: None (occurrence: None)
  Receive Date: 20101110
  Receipt Date: 20101103
  Transmission Date: 20110411
  Serious: Yes (Hospitalization)
  Sender: FDA-Public Use
  Company Number: US-JNJCH-2010025352

PATIENT
  Age: 16 Year
  Sex: Male
  Weight: 62.6 kg

DRUGS (1)
  1. ADVANCED LISTERINE WITH TARTAR PROTECTION [Suspect]
     Indication: ALCOHOL USE
     Dosage: TEXT:ENTIRE BOTTLE
     Route: 048
     Dates: start: 20101003, end: 20101102

REACTIONS (5)
  - DIZZINESS [None]
  - HALLUCINATION, VISUAL [None]
  - INCORRECT ROUTE OF DRUG ADMINISTRATION [None]
  - INTENTIONAL DRUG MISUSE [None]
  - NAUSEA [None]
